FAERS Safety Report 5493830-9 (Version None)
Quarter: 2007Q4

REPORT INFORMATION
  Report Type: 
  Country: None (occurrence: None)
  Receive Date: 20071019
  Receipt Date: 20071016
  Transmission Date: 20080405
  Serious: Yes (Death, Other)
  Sender: FDA-Public Use
  Company Number: 163-20785-07091097

PATIENT
  Age: 43 Year
  Sex: Female

DRUGS (1)
  1. THALOMID [Suspect]
     Indication: MULTIPLE MYELOMA
     Dosage: 50MG QD X3DAYS; 50MG BID X3DAYS;THEN 200MG PER DAY, ORAL
     Route: 048
     Dates: start: 20070427, end: 20070527

REACTIONS (7)
  - ANAEMIA [None]
  - MALIGNANT NEOPLASM PROGRESSION [None]
  - MULTIPLE MYELOMA [None]
  - NEUTROPENIA [None]
  - SEPSIS [None]
  - SPINAL CORD COMPRESSION [None]
  - THROMBOCYTOPENIA [None]
